FAERS Safety Report 18863661 (Version 3)
Quarter: 2021Q1

REPORT INFORMATION
  Report Type: Spontaneous
  Country: JP (occurrence: JP)
  Receive Date: 20210208
  Receipt Date: 20210217
  Transmission Date: 20210420
  Serious: Yes (Hospitalization)
  Sender: FDA-Public Use
  Company Number: NVSJ2021JP002083

PATIENT
  Age: 65 Year
  Sex: Female
  Weight: 46 kg

DRUGS (2)
  1. IMATINIB MESILATE [Suspect]
     Active Substance: IMATINIB MESYLATE
     Indication: GASTROINTESTINAL STROMAL TUMOUR
     Dosage: 400 MG
     Route: 065
  2. PACLITAXEL. [Concomitant]
     Active Substance: PACLITAXEL
     Indication: LUNG ADENOCARCINOMA STAGE IV
     Dosage: 100 MG, QW
     Route: 065

REACTIONS (8)
  - Face oedema [Recovering/Resolving]
  - Nausea [Unknown]
  - Haemorrhoidal haemorrhage [Unknown]
  - Weight increased [Recovering/Resolving]
  - Vomiting [Unknown]
  - Neutrophil count decreased [Unknown]
  - Rash [Recovering/Resolving]
  - Oedema [Recovering/Resolving]
